FAERS Safety Report 5333751-5 (Version None)
Quarter: 2007Q2

REPORT INFORMATION
  Report Type: 
  Country: None (occurrence: None)
  Receive Date: 20070524
  Receipt Date: 20070515
  Transmission Date: 20071010
  Serious: Yes (Other)
  Sender: FDA-Public Use
  Company Number: JP-ROCHE-498228

PATIENT
  Age: 66 Year
  Sex: Male
  Weight: 61 kg

DRUGS (7)
  1. PEGASYS [Suspect]
     Route: 058
     Dates: start: 20051026, end: 20070302
  2. URSO 250 [Concomitant]
     Route: 048
     Dates: start: 20051026, end: 20060512
  3. NEUQUINON [Concomitant]
     Route: 048
     Dates: start: 20051026, end: 20060512
  4. GASTROM [Concomitant]
     Route: 048
     Dates: start: 20051026, end: 20060512
  5. 1 CONCOMITANT DRUG [Concomitant]
     Dosage: REOPRTED AS OTSUJI-TO.
     Route: 048
     Dates: start: 20060425, end: 20060614
  6. BLOPRESS [Concomitant]
     Route: 048
     Dates: start: 20061012, end: 20070414
  7. LENDORMIN [Concomitant]
     Route: 048
     Dates: start: 20061109, end: 20070414

REACTIONS (1)
  - SUBDURAL HAEMATOMA [None]
